FAERS Safety Report 4628229-8 (Version None)
Quarter: 2005Q2

REPORT INFORMATION
  Report Type: 
  Country: None (occurrence: None)
  Receive Date: 20050401
  Receipt Date: 20050321
  Transmission Date: 20051028
  Serious: Yes (Hospitalization, Other)
  Sender: FDA-Public Use
  Company Number: 2005048536

PATIENT
  Age: 55 Year
  Sex: Female

DRUGS (1)
  1. CELEBREX [Suspect]
     Indication: ILL-DEFINED DISORDER

REACTIONS (4)
  - ASTHENIA [None]
  - CARDIAC OPERATION [None]
  - DYSPNOEA [None]
  - HEART RATE INCREASED [None]
